FAERS Safety Report 8443407-8 (Version None)
Quarter: 2012Q2

REPORT INFORMATION
  Report Type: 
  Country: None (occurrence: None)
  Receive Date: 20120612
  Receipt Date: 20120612
  Transmission Date: 20120825
  Serious: Yes (Hospitalization)
  Sender: FDA-Public Use
  Company Number: None

PATIENT
  Age: 58 Year
  Sex: Male
  Weight: 100 kg

DRUGS (3)
  1. KOGENATE [Suspect]
  2. KOGENATE [Suspect]
     Indication: HAEMORRHAGE
     Dosage: 3296 UNITS PRN IV BOLUS
     Route: 040
     Dates: start: 20101201, end: 20110825
  3. KOGENATE [Suspect]
     Indication: HAEMORRHAGE
     Dosage: 4UNITS/KG/HR CONTINUOUS INFUSIO IV DRIP
     Route: 041
     Dates: start: 20110825, end: 20110826

REACTIONS (4)
  - HAEMORRHAGE [None]
  - MUSCULOSKELETAL PAIN [None]
  - DRUG EFFECT DECREASED [None]
  - ARTHRALGIA [None]
